FAERS Safety Report 9298919 (Version 1)
Quarter: 2013Q2

REPORT INFORMATION
  Report Type: Spontaneous
  Country: US (occurrence: US)
  Receive Date: 20130520
  Receipt Date: 20130520
  Transmission Date: 20140414
  Serious: No
  Sender: FDA-Public Use
  Company Number: US-SANOFI-AVENTIS-2012SA069874

PATIENT
  Sex: Male

DRUGS (1)
  1. APIDRA [Suspect]
     Dosage: APPROXIMATELY 30 UNITS/ VIA PUMP
     Route: 058

REACTIONS (2)
  - Coeliac disease [Not Recovered/Not Resolved]
  - Condition aggravated [Unknown]
